FAERS Safety Report 5726862-3 (Version None)
Quarter: 2008Q2

REPORT INFORMATION
  Report Type: 
  Country: None (occurrence: None)
  Receive Date: 20080502
  Receipt Date: 20080421
  Transmission Date: 20081010
  Serious: Yes (Other)
  Sender: FDA-Public Use
  Company Number: US-PFIZER INC-2008035718

PATIENT
  Sex: Female
  Weight: 81.6 kg

DRUGS (4)
  1. CHANTIX [Suspect]
     Indication: SMOKING CESSATION THERAPY
  2. ALCOHOL [Suspect]
  3. ALL OTHER THERAPEUTIC PRODUCTS [Concomitant]
  4. VICODIN [Concomitant]

REACTIONS (8)
  - BLOOD ALCOHOL INCREASED [None]
  - EYE DISORDER [None]
  - HEAD DISCOMFORT [None]
  - MALAISE [None]
  - NAUSEA [None]
  - NECK EXPLORATION [None]
  - STOMACH DISCOMFORT [None]
  - VOMITING [None]
